FAERS Safety Report 10232410 (Version 1)
Quarter: 2014Q2

REPORT INFORMATION
  Report Type: Spontaneous
  Country: US (occurrence: None)
  Receive Date: 20140611
  Receipt Date: 20140611
  Transmission Date: 20141212
  Serious: Yes (Life-Threatening, Disabling)
  Sender: FDA-Public Use
  Company Number: None

PATIENT
  Age: 53 Year
  Sex: Female
  Weight: 49.9 kg

DRUGS (1)
  1. HYDROQUINONE [Suspect]
     Indication: SKIN DISORDER
     Route: 061
     Dates: start: 20130201, end: 20130228

REACTIONS (6)
  - Application site erythema [None]
  - Application site pain [None]
  - Addison^s disease [None]
  - Polyglandular disorder [None]
  - Diabetes mellitus [None]
  - Autoimmune disorder [None]
